FAERS Safety Report 8525756-8 (Version None)
Quarter: 2012Q3

REPORT INFORMATION
  Report Type: 
  Country: None (occurrence: None)
  Receive Date: 20120720
  Receipt Date: 20120710
  Transmission Date: 20120928
  Serious: Yes (Hospitalization, Disabling, Other)
  Sender: FDA-Public Use
  Company Number: US-009507513-1205USA01680

PATIENT

DRUGS (2)
  1. FOSAMAX [Suspect]
     Indication: OSTEOPOROSIS
     Dosage: 70 MG, UNK
     Route: 048
     Dates: start: 20040113, end: 20080601
  2. ALENDRONATE SODIUM [Suspect]
     Indication: OSTEOPOROSIS
     Dosage: 70 MG, UNK
     Route: 048
     Dates: start: 20080628, end: 20100420

REACTIONS (15)
  - MACULAR DEGENERATION [None]
  - INCREASED TENDENCY TO BRUISE [None]
  - BLOOD CHOLESTEROL INCREASED [None]
  - HYPERTENSION [None]
  - ENDOTRACHEAL INTUBATION COMPLICATION [None]
  - OSTEONECROSIS OF JAW [None]
  - ANXIETY [None]
  - TOOTH EXTRACTION [None]
  - WRIST FRACTURE [None]
  - DENTAL CARE [None]
  - DENTAL IMPLANTATION [None]
  - ELECTROLYTE IMBALANCE [None]
  - TOOTH FRACTURE [None]
  - OSTEITIS [None]
  - NECROSIS [None]
